FAERS Safety Report 18955816 (Version 2)
Quarter: 2022Q1

REPORT INFORMATION
  Report Type: Spontaneous
  Country: US (occurrence: US)
  Receive Date: 20210301
  Receipt Date: 20220303
  Transmission Date: 20220423
  Serious: No
  Sender: FDA-Public Use
  Company Number: US-ABBVIE-20K-163-3467708-00

PATIENT
  Sex: Male

DRUGS (1)
  1. TESTOSTERONE [Suspect]
     Active Substance: TESTOSTERONE
     Indication: Product used for unknown indication
     Route: 061
     Dates: start: 202005

REACTIONS (5)
  - Product administered at inappropriate site [Unknown]
  - Application site exfoliation [Not Recovered/Not Resolved]
  - Application site erythema [Not Recovered/Not Resolved]
  - Application site rash [Not Recovered/Not Resolved]
  - Application site pruritus [Not Recovered/Not Resolved]

NARRATIVE: CASE EVENT DATE: 20200501
